FAERS Safety Report 4274644-4 (Version None)
Quarter: 2004Q1

REPORT INFORMATION
  Report Type: 
  Country: None (occurrence: None)
  Receive Date: 20040120
  Receipt Date: 20040115
  Transmission Date: 20041129
  Serious: Yes (Death)
  Sender: FDA-Public Use
  Company Number: PHEH2004US00857

PATIENT
  Age: 56 Year
  Sex: Male

DRUGS (3)
  1. CLOZARIL [Suspect]
     Indication: SCHIZOPHRENIA
     Dosage: 600 MG, QHS
     Route: 048
  2. LIPITOR [Concomitant]
  3. ABILIFY                                 /USA/ [Concomitant]

REACTIONS (1)
  - MYOCARDIAL INFARCTION [None]
